FAERS Safety Report 5514282-6 (Version None)
Quarter: 2007Q4

REPORT INFORMATION
  Report Type: 
  Country: None (occurrence: None)
  Receive Date: 20071113
  Receipt Date: 20071102
  Transmission Date: 20080405
  Serious: Yes (Hospitalization, Congenital Anomaly)
  Sender: FDA-Public Use
  Company Number: US-JNJFOC-20071101220

PATIENT
  Sex: Male
  Weight: 4.31 kg

DRUGS (1)
  1. TOPAMAX [Suspect]
     Indication: DRUG EXPOSURE DURING PREGNANCY

REACTIONS (3)
  - AORTA HYPOPLASIA [None]
  - CARDIAC DISORDER [None]
  - TRANSPOSITION OF THE GREAT VESSELS [None]
